FAERS Safety Report 6241663-8 (Version None)
Quarter: 2009Q2

REPORT INFORMATION
  Report Type: 
  Country: None (occurrence: None)
  Receive Date: 20090623
  Receipt Date: 20061128
  Transmission Date: 20091009
  Serious: Yes (Other)
  Sender: FDA-Public Use
  Company Number: US-ROCHE-472859

PATIENT
  Age: 50 Year
  Sex: Female

DRUGS (4)
  1. INTERFERON ALFA [Suspect]
     Dosage: ESCALATING DOSING SCHEDULE.
     Route: 058
  2. INTERFERON ALFA [Suspect]
     Dosage: DISCONTINUED AFTER 12 MONTHS.
     Route: 058
  3. INTERFERON ALFA [Suspect]
     Route: 058
  4. INTERFERON ALFA [Suspect]
     Dosage: DOSAGE DECREASED.
     Route: 058

REACTIONS (8)
  - ALOPECIA [None]
  - CHEST PAIN [None]
  - DIARRHOEA [None]
  - HEADACHE [None]
  - PRODUCTIVE COUGH [None]
  - SARCOIDOSIS [None]
  - SLEEP DISORDER [None]
  - WHITE BLOOD CELL COUNT DECREASED [None]
